FAERS Safety Report 5178902-0 (Version None)
Quarter: 2006Q4

REPORT INFORMATION
  Report Type: 
  Country: None (occurrence: None)
  Receive Date: 20061208
  Receipt Date: 20061121
  Transmission Date: 20070319
  Serious: Yes (Hospitalization)
  Sender: FDA-Public Use
  Company Number: US-2006-011722

PATIENT
  Age: 37 Year
  Sex: Male
  Weight: 124.7 kg

DRUGS (8)
  1. BETASERON [Suspect]
     Indication: RELAPSING-REMITTING MULTIPLE SCLEROSIS
     Dosage: 8 + 2 + 4 MIU, EVERY 2D, SUBCUTANEOUS - SEE IMAGE
     Route: 058
     Dates: start: 20060101, end: 20060101
  2. BETASERON [Suspect]
     Indication: RELAPSING-REMITTING MULTIPLE SCLEROSIS
     Dosage: 8 + 2 + 4 MIU, EVERY 2D, SUBCUTANEOUS - SEE IMAGE
     Route: 058
     Dates: start: 20060404, end: 20060401
  3. BETASERON [Suspect]
     Indication: RELAPSING-REMITTING MULTIPLE SCLEROSIS
     Dosage: 8 + 2 + 4 MIU, EVERY 2D, SUBCUTANEOUS - SEE IMAGE
     Route: 058
     Dates: start: 20060101
  4. BETASERON [Suspect]
     Indication: RELAPSING-REMITTING MULTIPLE SCLEROSIS
     Dosage: 8 + 2 + 4 MIU, EVERY 2D, SUBCUTANEOUS - SEE IMAGE
     Route: 058
     Dates: start: 20060101
  5. ALPRAZOLAM [Concomitant]
  6. LEVOTHYROXINE SODIUM [Concomitant]
  7. EFFEXOR [Concomitant]
  8. TOPAMAX [Concomitant]

REACTIONS (5)
  - DIZZINESS [None]
  - EYE PAIN [None]
  - INJECTION SITE ERYTHEMA [None]
  - LOSS OF CONSCIOUSNESS [None]
  - VISUAL DISTURBANCE [None]
